FAERS Safety Report 6818554 (Version 2)
Quarter: 2014Q3

REPORT INFORMATION
  Report Type: Spontaneous
  Country: US (occurrence: None)
  Receive Date: 20081112
  Receipt Date: 20140918
  Transmission Date: 20150326
  Serious: Yes (Other)
  Sender: FDA-Public Use
  Company Number: 2008S1010822

PATIENT
  Age: 51 Year
  Sex: Female

DRUGS (5)
  1. HYDROCHLOROTHIAZIDE (HYDROCHLOROTHIAZIDE) [Concomitant]
     Active Substance: HYDROCHLOROTHIAZIDE
  2. PHOSPHO-SODA [Suspect]
     Active Substance: SODIUM PHOSPHATE, DIBASIC\SODIUM PHOSPHATE, MONOBASIC
     Indication: COLONOSCOPY
     Route: 048
     Dates: start: 20060112, end: 20060112
  3. IMITREX [Concomitant]
     Active Substance: SUMATRIPTAN\SUMATRIPTAN SUCCINATE
  4. DULCOLAX [Suspect]
     Active Substance: BISACODYL OR DOCUSATE SODIUM
     Indication: COLONOSCOPY
     Route: 048
     Dates: start: 20060112, end: 20060112
  5. LISINOPRIL (LISINOPRIL) [Concomitant]
     Active Substance: LISINOPRIL

REACTIONS (20)
  - Dizziness [None]
  - Nightmare [None]
  - Renal failure [None]
  - Hyperhidrosis [None]
  - Anxiety [None]
  - Acute phosphate nephropathy [None]
  - Hypertension [None]
  - Asthenia [None]
  - Dysgeusia [None]
  - Vomiting [None]
  - Fatigue [None]
  - Cold sweat [None]
  - Insomnia [None]
  - Nephrogenic anaemia [None]
  - Myalgia [None]
  - Muscle spasms [None]
  - Nausea [None]
  - Unevaluable event [None]
  - Renal failure acute [None]
  - Malaise [None]

NARRATIVE: CASE EVENT DATE: 200602
